FAERS Safety Report 9106672 (Version 3)
Quarter: 2013Q4

REPORT INFORMATION
  Report Type: Report from Study
  Country: US (occurrence: US)
  Receive Date: 20130220
  Receipt Date: 20131003
  Transmission Date: 20140711
  Serious: Yes (Other)
  Sender: FDA-Public Use
  Company Number: US-ROCHE-1193045

PATIENT
  Age: 55 Year
  Sex: Male
  Weight: 117.7 kg

DRUGS (4)
  1. RIBAVIRIN [Suspect]
     Indication: HEPATITIS C
     Dosage: 3 TABLETS IN MORNING AND 2 TABLETS IN EVENING
     Route: 048
     Dates: start: 20130103, end: 20130218
  2. PEG-INTERFERON ALFA 2A [Suspect]
     Indication: HEPATITIS C
     Route: 058
     Dates: start: 20130103, end: 20130218
  3. TELAPREVIR [Suspect]
     Indication: HEPATITIS C
     Dosage: 2 TABLETS 3 TIMES A DAY
     Route: 048
     Dates: start: 20130103, end: 20130218
  4. AVATROMBOPAG MALEATE [Suspect]
     Indication: THROMBOCYTOPENIA
     Route: 048
     Dates: start: 20121220, end: 20130218

REACTIONS (1)
  - Paraesthesia [Recovered/Resolved]
